FAERS Safety Report 5104122-1 (Version None)
Quarter: 2006Q3

REPORT INFORMATION
  Report Type: 
  Country: None (occurrence: None)
  Receive Date: 20060913
  Receipt Date: 20050927
  Transmission Date: 20061208
  Serious: Yes (Hospitalization)
  Sender: FDA-Public Use
  Company Number: US-MERCK-0509USA04014

PATIENT
  Age: 62 Year
  Sex: Female
  Weight: 86 kg

DRUGS (26)
  1. CITRACAL CAPLETS + D [Concomitant]
     Route: 065
  2. ASCORBIC ACID [Concomitant]
     Route: 065
  3. CYANOCOBALAMIN [Concomitant]
     Route: 065
  4. PREDNISONE [Concomitant]
     Route: 065
  5. VITAMIN E [Concomitant]
     Route: 065
  6. PYRIDOXINE [Concomitant]
     Route: 065
  7. ZINC (UNSPECIFIED) [Concomitant]
     Route: 065
  8. FOSAMAX [Suspect]
     Route: 048
     Dates: start: 20010509
  9. FOSAMAX [Suspect]
     Route: 048
     Dates: start: 19980709, end: 20010509
  10. DELTASONE [Concomitant]
     Route: 065
  11. RELAFEN [Concomitant]
     Route: 065
  12. DARVOCET [Concomitant]
     Route: 065
  13. LASIX [Concomitant]
     Route: 065
     Dates: end: 20010201
  14. LASIX [Concomitant]
     Route: 065
     Dates: start: 20010201
  15. POTASSIUM CHLORIDE [Concomitant]
     Route: 065
     Dates: end: 20010201
  16. POTASSIUM CHLORIDE [Concomitant]
     Route: 065
     Dates: start: 20010201
  17. ARAVA [Concomitant]
     Route: 065
  18. DIOVAN [Concomitant]
     Route: 065
  19. ZIAC [Concomitant]
     Route: 065
  20. PREMPRO [Concomitant]
     Route: 065
  21. FOLIC ACID [Concomitant]
     Route: 065
  22. SYNTHROID [Concomitant]
     Route: 065
  23. CLARITIN [Concomitant]
     Route: 065
  24. PROSOM [Concomitant]
     Route: 065
  25. XANAX [Concomitant]
     Route: 065
  26. CENTRUM [Concomitant]
     Route: 065

REACTIONS (10)
  - ASTHENIA [None]
  - DIPLOPIA [None]
  - GASTROOESOPHAGEAL REFLUX DISEASE [None]
  - INTERVERTEBRAL DISC DEGENERATION [None]
  - JAW FRACTURE [None]
  - LUMBAR SPINAL STENOSIS [None]
  - NAUSEA [None]
  - OSTEOMYELITIS [None]
  - RASH [None]
  - SPONDYLOLISTHESIS [None]
